FAERS Safety Report 8502914-X (Version None)
Quarter: 2012Q3

REPORT INFORMATION
  Report Type: 
  Country: None (occurrence: None)
  Receive Date: 20120711
  Receipt Date: 20120705
  Transmission Date: 20120928
  Serious: Yes (Other)
  Sender: FDA-Public Use
  Company Number: US-PFIZER INC-2012133825

PATIENT
  Sex: Female
  Weight: 89 kg

DRUGS (3)
  1. LYRICA [Suspect]
     Indication: PAIN IN EXTREMITY
  2. ULTRAM [Concomitant]
     Indication: PAIN
     Dosage: 100 MG, AS NEEDED
  3. LYRICA [Suspect]
     Indication: NEUROPATHY PERIPHERAL
     Dosage: 100 MG, 4X/DAY
     Dates: start: 20111201

REACTIONS (1)
  - JOINT RANGE OF MOTION DECREASED [None]
